FAERS Safety Report 22625075 (Version 7)
Quarter: 2024Q2

REPORT INFORMATION
  Report Type: Spontaneous
  Country: IN (occurrence: IN)
  Receive Date: 20230621
  Receipt Date: 20240411
  Transmission Date: 20240716
  Serious: Yes (Other)
  Sender: FDA-Public Use
  Company Number: IN-PFIZER INC-PV202300108059

PATIENT
  Age: 54 Year
  Sex: Female
  Weight: 64 kg

DRUGS (6)
  1. LORLATINIB [Suspect]
     Active Substance: LORLATINIB
     Dosage: 100 MG
     Dates: start: 20230225
  2. LORLATINIB [Suspect]
     Active Substance: LORLATINIB
     Dosage: 75 MG, 1X/DAY
     Route: 048
     Dates: start: 20230530
  3. LORLATINIB [Suspect]
     Active Substance: LORLATINIB
     Dosage: 50 MG, 1X/DAY
     Route: 048
  4. DEXAMETHASONE [Concomitant]
     Active Substance: DEXAMETHASONE
     Dosage: 1 MG, 2X/DAY
  5. LEVERA [LEVETIRACETAM] [Concomitant]
     Dosage: 500 MG, 2X/DAY
  6. ALECTINIB [Concomitant]
     Active Substance: ALECTINIB
     Dosage: 600 MG, 2X/DAY

REACTIONS (2)
  - Hallucination [Recovered/Resolved]
  - Off label use [Unknown]
